FAERS Safety Report 4747723-2 (Version None)
Quarter: 2005Q3

REPORT INFORMATION
  Report Type: 
  Country: None (occurrence: None)
  Receive Date: 20050818
  Receipt Date: 20050805
  Transmission Date: 20060218
  Serious: Yes (Hospitalization)
  Sender: FDA-Public Use
  Company Number: US-KINGPHARMUSA00001-K200501041

PATIENT

DRUGS (1)
  1. ALTACE [Suspect]

REACTIONS (1)
  - UNEVALUABLE EVENT [None]
